FAERS Safety Report 16497567 (Version 1)
Quarter: 2019Q2

REPORT INFORMATION
  Report Type: Spontaneous
  Country: US (occurrence: US)
  Receive Date: 20190628
  Receipt Date: 20190628
  Transmission Date: 20190711
  Serious: Yes (Other)
  Sender: FDA-Public Use
  Company Number: US-009507513-1904USA007198

PATIENT
  Sex: Female

DRUGS (3)
  1. STERILE WATER [Suspect]
     Active Substance: WATER
     Indication: NEOPLASM MALIGNANT
     Dosage: 0.7 ML FOR RECONSTITUTION, WEEKLY
     Route: 059
     Dates: start: 20180124
  2. THYROID [Concomitant]
     Active Substance: LEVOTHYROXINE\LIOTHYRONINE
     Dosage: UNK
  3. SYLATRON [Suspect]
     Active Substance: PEGINTERFERON ALFA-2B
     Indication: NEOPLASM MALIGNANT
     Dosage: 240 MICROGRAM IN 0.7 ML OF DILUENT, INJECT 0.4 ML OF SOLUTION, WEEKLY
     Route: 059
     Dates: start: 20180124

REACTIONS (4)
  - Hypoglycaemia [Unknown]
  - Vision blurred [Unknown]
  - Loss of consciousness [Unknown]
  - Blood glucose decreased [Unknown]
